FAERS Safety Report 4843366-0 (Version None)
Quarter: 2005Q4

REPORT INFORMATION
  Report Type: 
  Country: None (occurrence: None)
  Receive Date: 20051201
  Receipt Date: 20051123
  Transmission Date: 20060501
  Serious: Yes (Other)
  Sender: FDA-Public Use
  Company Number: US-MERCK-0511USA04230

PATIENT
  Age: 57 Year
  Sex: Female
  Weight: 64 kg

DRUGS (10)
  1. VIOXX [Suspect]
     Indication: ARTHRITIS
     Route: 048
     Dates: start: 19991019, end: 20050101
  2. PREVACID [Concomitant]
     Route: 065
  3. [THERAPY UNSPECIFIED] [Concomitant]
     Route: 065
  4. PROPULSID [Concomitant]
     Route: 065
  5. ZOCOR [Concomitant]
     Route: 065
  6. ESTRADIOL [Concomitant]
     Route: 065
  7. BUSPAR [Concomitant]
     Route: 065
  8. PLENDIL [Concomitant]
     Route: 065
  9. DOXEPIN HYDROCHLORIDE [Concomitant]
     Route: 065
  10. KLOR-CON [Concomitant]
     Route: 065

REACTIONS (1)
  - CEREBROVASCULAR ACCIDENT [None]
